FAERS Safety Report 6299790-5 (Version None)
Quarter: 2009Q3

REPORT INFORMATION
  Report Type: 
  Country: None (occurrence: None)
  Receive Date: 20090806
  Receipt Date: 20090804
  Transmission Date: 20100115
  Serious: Yes (Hospitalization, Other)
  Sender: FDA-Public Use
  Company Number: JP-BRISTOL-MYERS SQUIBB COMPANY-14727879

PATIENT
  Age: 23 Year
  Sex: Male

DRUGS (7)
  1. REYATAZ [Suspect]
     Indication: HIV INFECTION
     Route: 048
     Dates: start: 20081001
  2. EFAVIRENZ [Suspect]
     Indication: HIV INFECTION
     Dates: start: 20080701
  3. STAVUDINE [Suspect]
     Indication: HIV INFECTION
     Dates: start: 20090101
  4. TENOFOVIR DF + EMTRICITABINE [Suspect]
     Indication: HIV INFECTION
     Dosage: 1DF=1TAB;FORM:TAB
     Dates: start: 20080701
  5. RITONAVIR [Suspect]
     Indication: HIV INFECTION
     Dates: start: 20081001
  6. TENOFOVIR DISOPROXIL FUMARATE [Suspect]
     Indication: HIV INFECTION
     Dates: start: 20081101
  7. ZIDOVUDINE [Suspect]
     Indication: HIV INFECTION
     Dates: start: 20081101, end: 20090101

REACTIONS (3)
  - ANAEMIA [None]
  - DECREASED APPETITE [None]
  - PNEUMOCYSTIS JIROVECI PNEUMONIA [None]
